FAERS Safety Report 5682326-7 (Version None)
Quarter: 2008Q1

REPORT INFORMATION
  Report Type: 
  Country: None (occurrence: None)
  Receive Date: 20080327
  Receipt Date: 20071017
  Transmission Date: 20080703
  Serious: No
  Sender: FDA-Public Use
  Company Number: US-BAUSCH-2007BL003779

PATIENT
  Age: 72 Year
  Sex: Female

DRUGS (2)
  1. ALREX [Suspect]
     Indication: BLEPHARITIS
     Route: 047
     Dates: start: 20071006
  2. SYNTHROID [Concomitant]
     Route: 048

REACTIONS (2)
  - DYSGEUSIA [None]
  - RHINORRHOEA [None]
